FAERS Safety Report 17353553 (Version 1)
Quarter: 2020Q1

REPORT INFORMATION
  Report Type: Report from Study
  Country: FR (occurrence: FR)
  Receive Date: 20200131
  Receipt Date: 20200131
  Transmission Date: 20200409
  Serious: Yes (Other)
  Sender: FDA-Public Use
  Company Number: FR-ROCHE-2531189

PATIENT
  Age: 78 Year
  Sex: Male

DRUGS (1)
  1. BEVACIZUMAB. [Suspect]
     Active Substance: BEVACIZUMAB
     Indication: COLORECTAL CANCER METASTATIC
     Route: 065
     Dates: start: 20170802

REACTIONS (3)
  - Pulmonary embolism [Unknown]
  - Embolism arterial [Unknown]
  - Atrial flutter [Unknown]

NARRATIVE: CASE EVENT DATE: 20170814
